FAERS Safety Report 5357661-2 (Version None)
Quarter: 2007Q2

REPORT INFORMATION
  Report Type: 
  Country: None (occurrence: None)
  Receive Date: 20070612
  Receipt Date: 20070601
  Transmission Date: 20071010
  Serious: Yes (Hospitalization)
  Sender: FDA-Public Use
  Company Number: 2007BI011974

PATIENT
  Age: 50 Year
  Sex: Male

DRUGS (1)
  1. AVONEX [Suspect]
     Indication: NEUROMYELITIS OPTICA
     Dosage: 30 UG;QM;IM
     Route: 030
     Dates: start: 20020701

REACTIONS (5)
  - COMPUTERISED TOMOGRAM ABNORMAL [None]
  - INFLUENZA LIKE ILLNESS [None]
  - LUNG DISORDER [None]
  - MUSCLE SPASMS [None]
  - PANCREATITIS [None]
